FAERS Safety Report 8961539 (Version 1)
Quarter: 2012Q4

REPORT INFORMATION
  Report Type: 
  Country: FR (occurrence: FR)
  Receive Date: 20121212
  Receipt Date: 20121212
  Transmission Date: 20130627
  Serious: Yes (Other)
  Sender: FDA-Public Use
  Company Number: PHHY2012FR082789

PATIENT
  Age: 63 Year
  Sex: Male

DRUGS (11)
  1. EVEROLIMUS [Suspect]
     Indication: LIVER TRANSPLANT
     Dosage: 0.5 mg, BID
  2. EVEROLIMUS [Interacting]
     Dosage: 8 mg, TID
  3. EVEROLIMUS [Interacting]
     Dosage: 5.25 mg, per day
  4. RIFAMPICIN [Interacting]
     Indication: PULMONARY TUBERCULOSIS
     Dosage: 600 mg per day
  5. RIFABUTIN [Interacting]
     Indication: PULMONARY TUBERCULOSIS
     Dosage: 450 mg, per day
  6. CORTICOSTEROIDS [Concomitant]
     Indication: IMMUNOSUPPRESSION
  7. MYCOPHENOLATE MOFETIL [Concomitant]
     Indication: LIVER TRANSPLANT REJECTION
  8. SORAFENIB [Concomitant]
     Dosage: UNK UKN, UNK
  9. ISONIAZID [Concomitant]
     Indication: PULMONARY TUBERCULOSIS
     Dosage: 250 mg per day
  10. PYRAZINAMIDE [Concomitant]
     Indication: PULMONARY TUBERCULOSIS
     Dosage: 1500 mg per day
  11. ETHAMBUTOL [Concomitant]
     Indication: PULMONARY TUBERCULOSIS
     Dosage: 1200 mg per day

REACTIONS (5)
  - Pneumonia [Recovering/Resolving]
  - Pancytopenia [Unknown]
  - Hepatic enzyme increased [Recovering/Resolving]
  - Drug interaction [Unknown]
  - Immunosuppressant drug level decreased [Recovering/Resolving]
